FAERS Safety Report 7500901-1 (Version None)
Quarter: 2011Q2

REPORT INFORMATION
  Report Type: 
  Country: None (occurrence: None)
  Receive Date: 20110524
  Receipt Date: 20110429
  Transmission Date: 20111010
  Serious: Yes (Hospitalization)
  Sender: FDA-Public Use
  Company Number: D0071469A

PATIENT
  Age: 43 Year
  Sex: Female
  Weight: 50.3 kg

DRUGS (3)
  1. TRUVADA [Suspect]
     Route: 065
     Dates: start: 20091002
  2. REYATAZ [Suspect]
     Route: 065
     Dates: start: 20091002
  3. CELSENTRI [Suspect]
     Indication: HIV INFECTION
     Dosage: 300MG PER DAY
     Route: 048
     Dates: start: 20091002

REACTIONS (1)
  - HODGKIN'S DISEASE [None]
